FAERS Safety Report 4373596-6 (Version None)
Quarter: 2004Q1

REPORT INFORMATION
  Report Type: 
  Country: None (occurrence: None)
  Receive Date: 20040305
  Receipt Date: 20040204
  Transmission Date: 20041129
  Serious: Yes (Other)
  Sender: FDA-Public Use
  Company Number: 2004UW02003

PATIENT
  Age: 65 Year
  Sex: Female
  Weight: 58.514 kg

DRUGS (2)
  1. CRESTOR [Suspect]
     Indication: HYPERCHOLESTEROLAEMIA
     Dosage: 5 MG QD PO
     Route: 048
     Dates: start: 20031001
  2. ESTROGEN [Concomitant]

REACTIONS (1)
  - MUSCLE SPASMS [None]
